FAERS Safety Report 5158810-1 (Version None)
Quarter: 2006Q4

REPORT INFORMATION
  Report Type: 
  Country: None (occurrence: None)
  Receive Date: 20061128
  Receipt Date: 20061031
  Transmission Date: 20070319
  Serious: Yes (Other)
  Sender: FDA-Public Use
  Company Number: DE-ELI_LILLY_AND_COMPANY-DE200611000267

PATIENT
  Age: 45 Year
  Sex: Male

DRUGS (1)
  1. FORTEO [Suspect]
     Indication: COMMINUTED FRACTURE
     Dosage: 20 UNK, UNK
     Route: 058

REACTIONS (3)
  - BONE PAIN [None]
  - OFF LABEL USE [None]
  - WEIGHT INCREASED [None]
